FAERS Safety Report 25735237 (Version 1)
Quarter: 2025Q3

REPORT INFORMATION
  Report Type: Other
  Country: CN (occurrence: CN)
  Receive Date: 20250828
  Receipt Date: 20250828
  Transmission Date: 20251020
  Serious: Yes (Life-Threatening, Other)
  Sender: BRAINTREE
  Company Number: CN-BRAINTREE LABORATORIES, INC.-2025BTE00547

PATIENT
  Age: 61 Year
  Sex: Female
  Weight: 65 kg

DRUGS (2)
  1. MAGNESIUM SULFATE\POTASSIUM SULFATE\SODIUM SULFATE [Suspect]
     Active Substance: MAGNESIUM SULFATE\POTASSIUM SULFATE\SODIUM SULFATE
     Indication: Endoscopy gastrointestinal
     Dosage: 176 ML, 1X/DAY
     Route: 048
     Dates: start: 20250811, end: 20250812
  2. MAGNESIUM SULFATE\POTASSIUM SULFATE\SODIUM SULFATE [Suspect]
     Active Substance: MAGNESIUM SULFATE\POTASSIUM SULFATE\SODIUM SULFATE
     Indication: Bowel preparation

REACTIONS (1)
  - Mallory-Weiss syndrome [Recovered/Resolved]

NARRATIVE: CASE EVENT DATE: 20250812
